FAERS Safety Report 8831087 (Version 1)
Quarter: 2012Q4

REPORT INFORMATION
  Report Type: Report from Study
  Country: DE (occurrence: DE)
  Receive Date: 20121009
  Receipt Date: 20121009
  Transmission Date: 20130627
  Serious: Yes (Hospitalization)
  Sender: FDA-Public Use
  Company Number: DE-PFIZER INC-2012248906

PATIENT
  Age: 68 Year
  Sex: Male

DRUGS (2)
  1. CISPLATIN [Suspect]
     Indication: NON-SMALL CELL LUNG CANCER
     Dosage: 100 mg, 1x/day
     Route: 042
     Dates: start: 20120822
  2. PACLITAXEL [Suspect]
     Indication: NON-SMALL CELL LUNG CANCER
     Dosage: 351 mg, 1x/day
     Route: 042
     Dates: start: 20120822

REACTIONS (1)
  - Pneumonia [Recovered/Resolved]
